FAERS Safety Report 6517551-6 (Version None)
Quarter: 2009Q4

REPORT INFORMATION
  Report Type: 
  Country: None (occurrence: None)
  Receive Date: 20091224
  Receipt Date: 20091216
  Transmission Date: 20100525
  Serious: Yes (Other)
  Sender: FDA-Public Use
  Company Number: US-ROCHE-675301

PATIENT
  Age: 12 Year
  Sex: Female
  Weight: 64.9 kg

DRUGS (4)
  1. TAMIFLU [Suspect]
     Indication: H1N1 INFLUENZA
     Route: 048
     Dates: start: 20091212
  2. TYLENOL (CAPLET) [Concomitant]
     Dates: start: 20091211
  3. MOTRIN [Concomitant]
     Dates: start: 20091212
  4. ROBITUSSIN DM [Concomitant]
     Dates: start: 20091212

REACTIONS (4)
  - COUGH [None]
  - HEADACHE [None]
  - PYREXIA [None]
  - VISUAL IMPAIRMENT [None]
